FAERS Safety Report 5750767-5 (Version None)
Quarter: 2008Q2

REPORT INFORMATION
  Report Type: 
  Country: None (occurrence: None)
  Receive Date: 20080528
  Receipt Date: 20080519
  Transmission Date: 20081010
  Serious: Yes (Hospitalization)
  Sender: FDA-Public Use
  Company Number: A0626755A

PATIENT
  Age: 73 Year
  Sex: Female

DRUGS (3)
  1. LAMICTAL [Suspect]
     Indication: DRUG USE FOR UNKNOWN INDICATION
     Route: 065
  2. TRIAMCINOLONE ACETONIDE [Suspect]
     Indication: RASH
  3. UNSPECIFIED MEDICATION [Concomitant]

REACTIONS (4)
  - ADVERSE REACTION [None]
  - DRUG INEFFECTIVE [None]
  - RASH [None]
  - RASH ERYTHEMATOUS [None]
